FAERS Safety Report 7466917-9 (Version None)
Quarter: 2011Q2

REPORT INFORMATION
  Report Type: 
  Country: None (occurrence: None)
  Receive Date: 20110509
  Receipt Date: 20100915
  Transmission Date: 20111010
  Serious: No
  Sender: FDA-Public Use
  Company Number: US-ALEXION-A201001169

PATIENT
  Sex: Male

DRUGS (4)
  1. SOLIRIS [Suspect]
     Indication: PAROXYSMAL NOCTURNAL HAEMOGLOBINURIA
     Dosage: 600 MG, Q2W
     Route: 042
     Dates: start: 20100908, end: 20100922
  2. SOLIRIS [Suspect]
     Dosage: 900 MG, Q2W
     Route: 042
     Dates: start: 20101006
  3. AMBIEN [Concomitant]
     Dosage: 5 MG, PRN
     Route: 042
  4. FOLIC ACID [Concomitant]
     Dosage: 1 MG, QD

REACTIONS (1)
  - HEADACHE [None]
